FAERS Safety Report 24107805 (Version 1)
Quarter: 2024Q3

REPORT INFORMATION
  Report Type: Spontaneous
  Country: US (occurrence: US)
  Receive Date: 20240718
  Receipt Date: 20240718
  Transmission Date: 20241016
  Serious: No
  Sender: BRISTOL MYERS SQUIBB
  Company Number: US-BRISTOL-MYERS SQUIBB COMPANY-2024-109582

PATIENT
  Age: 82 Year
  Sex: Male
  Weight: 88.45 kg

DRUGS (2)
  1. ELIQUIS [Suspect]
     Active Substance: APIXABAN
     Indication: Cerebrovascular accident
     Route: 048
  2. ELIQUIS [Suspect]
     Active Substance: APIXABAN
     Indication: Cardiac disorder
     Route: 048

REACTIONS (8)
  - Product container issue [Unknown]
  - Product taste abnormal [Unknown]
  - Visual impairment [Unknown]
  - Overweight [Unknown]
  - Dysarthria [Unknown]
  - Memory impairment [Unknown]
  - Product contamination [Unknown]
  - Inability to afford medication [Unknown]
